FAERS Safety Report 20695673 (Version 1)
Quarter: 2022Q2

REPORT INFORMATION
  Report Type: Spontaneous
  Country: US (occurrence: None)
  Receive Date: 20220408
  Receipt Date: 20220408
  Transmission Date: 20220721
  Serious: Yes (Life-Threatening)
  Sender: FDA-Public Use
  Company Number: None

PATIENT
  Age: 45 Year
  Sex: Male
  Weight: 79.7 kg

DRUGS (15)
  1. CETACAINE ANESTHETIC [Suspect]
     Active Substance: BENZOCAINE\BUTAMBEN\TETRACAINE HYDROCHLORIDE
     Indication: Echocardiogram
     Dosage: FREQUENCY : ONCE;?
     Route: 061
     Dates: start: 20220222, end: 20220222
  2. PANTOPRAZOLE [Concomitant]
     Active Substance: PANTOPRAZOLE
  3. AMLODIPINE [Concomitant]
     Active Substance: AMLODIPINE BESYLATE
  4. ASPIRIN [Concomitant]
     Active Substance: ASPIRIN
  5. ATENOLOL [Concomitant]
     Active Substance: ATENOLOL
  6. METOCLOPRAMIDE [Concomitant]
     Active Substance: METOCLOPRAMIDE
  7. SENNA [Concomitant]
     Active Substance: SENNA LEAF\SENNOSIDES\SENNOSIDES A AND B
  8. VALSARTAN [Concomitant]
     Active Substance: VALSARTAN
  9. LIDOCAINE [Concomitant]
     Active Substance: LIDOCAINE
  10. FENTANYL [Concomitant]
     Active Substance: FENTANYL
  11. MIDAZOLAM [Concomitant]
     Active Substance: MIDAZOLAM
  12. MAGNESIUM SULFATE [Concomitant]
     Active Substance: MAGNESIUM SULFATE
  13. INSULIN ASPART [Concomitant]
     Active Substance: INSULIN ASPART
  14. INSULIN GLARGINE [Concomitant]
     Active Substance: INSULIN GLARGINE
  15. LACTATED RINGERS SOLUTION [Concomitant]
     Active Substance: CALCIUM CHLORIDE\POTASSIUM CHLORIDE\SODIUM CHLORIDE\SODIUM LACTATE

REACTIONS (3)
  - Hypoxia [None]
  - Oxygen saturation decreased [None]
  - Methaemoglobinaemia [None]

NARRATIVE: CASE EVENT DATE: 20220222
